FAERS Safety Report 6107664-5 (Version None)
Quarter: 2009Q1

REPORT INFORMATION
  Report Type: 
  Country: None (occurrence: None)
  Receive Date: 20090309
  Receipt Date: 20090305
  Transmission Date: 20090719
  Serious: Yes (Hospitalization)
  Sender: FDA-Public Use
  Company Number: GB-SP-2009-00901

PATIENT
  Age: 70 Year
  Sex: Male

DRUGS (1)
  1. IMMUCYST [Suspect]
     Indication: CARCINOMA IN SITU OF BLADDER
     Route: 043
     Dates: start: 20080801, end: 20081101

REACTIONS (7)
  - BOVINE TUBERCULOSIS [None]
  - CYSTITIS NONINFECTIVE [None]
  - DYSURIA [None]
  - GRANULOMA [None]
  - PYREXIA [None]
  - SUPRAPUBIC PAIN [None]
  - URINARY TRACT INFECTION [None]
